FAERS Safety Report 10184635 (Version 2)
Quarter: 2014Q2

REPORT INFORMATION
  Report Type: Spontaneous
  Country: US (occurrence: US)
  Receive Date: 20140521
  Receipt Date: 20140521
  Transmission Date: 20141212
  Serious: Yes (Other)
  Sender: FDA-Public Use
  Company Number: US-RANBAXY-2011US-81123

PATIENT
  Age: 54 Year
  Sex: Male

DRUGS (1)
  1. ZOLPIDEM [Suspect]
     Indication: PERIODIC LIMB MOVEMENT DISORDER
     Dosage: 15 MG, DAILY (USUAL BED TIME DOSE)
     Route: 065

REACTIONS (3)
  - Amnesia [Unknown]
  - Sleep-related eating disorder [Recovered/Resolved]
  - Weight increased [Unknown]
